FAERS Safety Report 9767445 (Version 2)
Quarter: 2014Q1

REPORT INFORMATION
  Report Type: Report from Study
  Country: NL (occurrence: NL)
  Receive Date: 20131217
  Receipt Date: 20140312
  Transmission Date: 20141002
  Serious: Yes (Hospitalization)
  Sender: FDA-Public Use
  Company Number: NL-CELGENEUS-114-21880-13120049

PATIENT
  Age: 78 Year
  Sex: Male
  Weight: 91 kg

DRUGS (2)
  1. REVLIMID [Suspect]
     Indication: MYELODYSPLASTIC SYNDROME
     Route: 048
     Dates: start: 20131031, end: 20131114
  2. RED BLOOD CELLS [Concomitant]
     Indication: ANAEMIA
     Route: 065

REACTIONS (2)
  - Urticaria [Recovered/Resolved]
  - Chest pain [Recovered/Resolved]
